FAERS Safety Report 9333546 (Version 2)
Quarter: 2013Q4

REPORT INFORMATION
  Report Type: Spontaneous
  Country: US (occurrence: US)
  Receive Date: 20130606
  Receipt Date: 20131008
  Transmission Date: 20140711
  Serious: No
  Sender: FDA-Public Use
  Company Number: US-AMGEN-USASP2013020669

PATIENT
  Sex: 0

DRUGS (1)
  1. XGEVA [Suspect]
     Indication: BONE DISORDER

REACTIONS (1)
  - Hypocalcaemia [Unknown]
